FAERS Safety Report 9638299 (Version 5)
Quarter: 2014Q1

REPORT INFORMATION
  Report Type: Report from Study
  Country: US (occurrence: US)
  Receive Date: 20131022
  Receipt Date: 20140325
  Transmission Date: 20141002
  Serious: Yes (Hospitalization)
  Sender: FDA-Public Use
  Company Number: US-ACTELION-A-US2013-89969

PATIENT
  Age: 74 Year
  Sex: Female

DRUGS (5)
  1. VELETRI [Suspect]
     Indication: PULMONARY ARTERIAL HYPERTENSION
     Dosage: 22 NG/KG, PER MIN
     Route: 042
     Dates: start: 20120525
  2. VELETRI [Suspect]
     Dosage: 24 NG/KG, PER MIN
     Route: 042
     Dates: start: 20130712
  3. TYVASO [Suspect]
  4. ADCIRCA [Concomitant]
  5. COUMADIN [Concomitant]

REACTIONS (21)
  - Acute right ventricular failure [Not Recovered/Not Resolved]
  - Fluid overload [Not Recovered/Not Resolved]
  - Pulmonary arterial hypertension [Not Recovered/Not Resolved]
  - Condition aggravated [Not Recovered/Not Resolved]
  - Pneumonia [Not Recovered/Not Resolved]
  - Local swelling [Unknown]
  - Lacrimation increased [Unknown]
  - Pain in extremity [Unknown]
  - Condition aggravated [Unknown]
  - Fatigue [Unknown]
  - Malaise [Unknown]
  - Bone pain [Unknown]
  - Diarrhoea [Unknown]
  - Paraesthesia [Unknown]
  - Condition aggravated [Unknown]
  - Sleep disorder [Unknown]
  - Dyspnoea exertional [Unknown]
  - Oxygen saturation decreased [Unknown]
  - Flushing [Unknown]
  - Asthenia [Unknown]
  - Syncope [Unknown]
